FAERS Safety Report 9944990 (Version 1)
Quarter: 2014Q1

REPORT INFORMATION
  Report Type: Report from Study
  Country: US (occurrence: US)
  Receive Date: 20140303
  Receipt Date: 20140303
  Transmission Date: 20141002
  Serious: No
  Sender: FDA-Public Use
  Company Number: US-ABBVIE-13P-163-1055402-00

PATIENT
  Age: 64 Year
  Sex: Female

DRUGS (11)
  1. HUMIRA [Suspect]
     Indication: CROHN^S DISEASE
     Dates: start: 20120822
  2. ADVAIR [Concomitant]
     Indication: CHRONIC OBSTRUCTIVE PULMONARY DISEASE
  3. SPIRIVA [Concomitant]
     Indication: CHRONIC OBSTRUCTIVE PULMONARY DISEASE
     Dosage: DAILY
  4. PRO-AIR [Concomitant]
     Indication: CHRONIC OBSTRUCTIVE PULMONARY DISEASE
  5. ATENOLOL [Concomitant]
     Indication: HYPERTENSION
     Dosage: DAILY
  6. ATENOLOL [Concomitant]
     Indication: HEART RATE INCREASED
  7. NYSTATIN [Concomitant]
     Indication: CANDIDA INFECTION
  8. ALPRAZOLAM [Concomitant]
     Indication: INSOMNIA
     Dosage: 0.5MG 1/2 TABLET AS NEEDED
  9. PROMETHAZINE/CODEINE [Concomitant]
     Indication: PRODUCT USED FOR UNKNOWN INDICATION
  10. HYDROCODONE [Concomitant]
     Indication: BACK PAIN
  11. FLEXERIL [Concomitant]
     Indication: BACK PAIN

REACTIONS (3)
  - Pain in jaw [Recovering/Resolving]
  - Injection site haemorrhage [Recovering/Resolving]
  - Injection site bruising [Recovering/Resolving]
